FAERS Safety Report 26187851 (Version 1)
Quarter: 2025Q4

REPORT INFORMATION
  Report Type: Spontaneous
  Country: CA (occurrence: CA)
  Receive Date: 20251222
  Receipt Date: 20251222
  Transmission Date: 20260119
  Serious: Yes (Life-Threatening, Hospitalization, Disabling, Other)
  Sender: NOVARTIS
  Company Number: CA-HALEON-2279941

PATIENT
  Age: 43 Year
  Sex: Female
  Weight: 70 kg

DRUGS (309)
  1. VOLTAREN [Suspect]
     Active Substance: DICLOFENAC SODIUM
     Indication: Rheumatoid arthritis
     Dosage: UNK ROA: UNKNOWN
     Route: 065
  2. VOLTAREN [Suspect]
     Active Substance: DICLOFENAC SODIUM
     Indication: Product used for unknown indication
     Dosage: UNK ROA: UNKNOWN
     Route: 065
  3. VOLTAREN [Suspect]
     Active Substance: DICLOFENAC SODIUM
     Indication: Osteoarthritis
     Dosage: UNK ROA: UNKNOWN
     Route: 065
  4. VOLTAREN [Suspect]
     Active Substance: DICLOFENAC SODIUM
     Indication: Inflammation
     Dosage: UNK ROA: UNKNOWN
     Route: 065
  5. VOLTAREN [Suspect]
     Active Substance: DICLOFENAC SODIUM
     Dosage: UNK ROA: UNKNOWN
     Route: 065
  6. VOLTAREN [Suspect]
     Active Substance: DICLOFENAC SODIUM
     Dosage: 50 MG ROA: UNKNOWN
     Route: 065
  7. COSENTYX [Suspect]
     Active Substance: SECUKINUMAB
     Indication: Rheumatoid arthritis
     Dosage: UNK ROA: UNKNOWN
     Route: 065
  8. COSENTYX [Suspect]
     Active Substance: SECUKINUMAB
     Dosage: UNK ROA: INTRAVENOUS (NOT OTHERWISE SPECIFIED)
     Route: 042
  9. HYRIMOZ [Suspect]
     Active Substance: ADALIMUMAB-ADAZ
     Indication: Rheumatoid arthritis
     Dosage: 40 MG DOSAGE FORM: SOLUTION FOR INJECTION, ROA: SUBCUTANEOUS
     Route: 058
  10. HYRIMOZ [Suspect]
     Active Substance: ADALIMUMAB-ADAZ
     Indication: Psoriatic arthropathy
     Dosage: 400 MG DOSAGE FORM: SOLUTION FOR INJECTION, ROA: SUBCUTANEOUS
     Route: 058
  11. HYRIMOZ [Suspect]
     Active Substance: ADALIMUMAB-ADAZ
     Dosage: 40 MG DOSAGE FORM: SOLUTION FOR INJECTION, ROA: UNKNOWN
     Route: 058
  12. HYRIMOZ [Suspect]
     Active Substance: ADALIMUMAB-ADAZ
     Dosage: UNK DOSAGE FORM: SOLUTION FOR INJECTION, ROA: SUBCUTANEOUS
     Route: 058
  13. HYRIMOZ [Suspect]
     Active Substance: ADALIMUMAB-ADAZ
     Dosage: 40 MG, QD DOSAGE FORM: SOLUTION FOR INJECTION, ROA: SUBCUTANEOUS
     Route: 058
  14. HYRIMOZ [Suspect]
     Active Substance: ADALIMUMAB-ADAZ
     Dosage: 4 MG DOSAGE FORM: SOLUTION FOR INJECTION, ROA: SUBCUTANEOUS
     Route: 058
  15. HYRIMOZ [Suspect]
     Active Substance: ADALIMUMAB-ADAZ
     Dosage: 40 MG DOSAGE FORM: SOLUTION FOR INJECTION, ROA: SUBCUTANEOUS
     Route: 058
  16. HYRIMOZ [Suspect]
     Active Substance: ADALIMUMAB-ADAZ
     Dosage: 40 MG DOSAGE FORM: SOLUTION FOR INJECTION, ROA: SUBCUTANEOUS
     Route: 058
  17. HYRIMOZ [Suspect]
     Active Substance: ADALIMUMAB-ADAZ
     Dosage: UNK DOSAGE FORM: SOLUTION FOR INJECTION, ROA: SUBCONJUNCTIVAL
     Route: 058
  18. HYRIMOZ [Suspect]
     Active Substance: ADALIMUMAB-ADAZ
     Dosage: UNK DOSAGE FORM: SOLUTION FOR INJECTION, ROA: SUBCUTANEOUS
     Route: 058
  19. HYRIMOZ [Suspect]
     Active Substance: ADALIMUMAB-ADAZ
     Dosage: UNK DOSAGE FORM: SOLUTION FOR INJECTION, ROA: SUBCUTANEOUS
     Route: 058
  20. HYRIMOZ [Suspect]
     Active Substance: ADALIMUMAB-ADAZ
     Dosage: UNK DOSAGE FORM: SOLUTION FOR INJECTION, ROA: SUBCUTANEOUS
     Route: 058
  21. HYRIMOZ [Suspect]
     Active Substance: ADALIMUMAB-ADAZ
     Dosage: 4 MG
     Route: 058
  22. OXYCODONE [Suspect]
     Active Substance: OXYCODONE
     Indication: Product used for unknown indication
     Dosage: UNK DOSAGE FORM: NOT SPECIFIED, ROA: UNKNOWN
     Route: 065
  23. ALENDRONATE SODIUM [Suspect]
     Active Substance: ALENDRONATE SODIUM
     Indication: Rheumatoid arthritis
     Dosage: UNK ROA: UNKNOWN
     Route: 065
  24. ALENDRONATE SODIUM [Suspect]
     Active Substance: ALENDRONATE SODIUM
     Dosage: UNK ROA: UNKNOWN
     Route: 065
  25. MYCOPHENOLATE MOFETIL [Suspect]
     Active Substance: MYCOPHENOLATE MOFETIL
     Indication: Product used for unknown indication
     Dosage: UNK ROA: UNKNOWN CAPSULE
     Route: 065
  26. RISEDRONATE SODIUM [Suspect]
     Active Substance: RISEDRONATE SODIUM
     Indication: Product used for unknown indication
     Dosage: 1 DOSAGE FORM DOSAGE FORM: NOT SPECIFIED, ROA: UNKNOWN
     Route: 065
  27. DEXAMETHASONE [Suspect]
     Active Substance: DEXAMETHASONE
     Indication: Product used for unknown indication
     Dosage: UNK ROA: UNKNOWN
     Route: 065
  28. LEFLUNOMIDE [Suspect]
     Active Substance: LEFLUNOMIDE
     Indication: Rheumatoid arthritis
     Dosage: UNK ROA: UNKNOWN
     Route: 065
  29. LEFLUNOMIDE [Suspect]
     Active Substance: LEFLUNOMIDE
     Dosage: UNK ROA: UNKNOWN
     Route: 065
  30. LEFLUNOMIDE [Suspect]
     Active Substance: LEFLUNOMIDE
     Dosage: 20 MG ROA: UNKNOWN
     Route: 065
  31. LEFLUNOMIDE [Suspect]
     Active Substance: LEFLUNOMIDE
     Dosage: 20 MG, QD
     Route: 048
  32. LEFLUNOMIDE [Suspect]
     Active Substance: LEFLUNOMIDE
     Dosage: UNK
     Route: 048
  33. LEFLUNOMIDE [Suspect]
     Active Substance: LEFLUNOMIDE
     Dosage: UNK (TABLET)
     Route: 048
  34. LEFLUNOMIDE [Suspect]
     Active Substance: LEFLUNOMIDE
     Dosage: UNK
     Route: 065
  35. RITUXIMAB [Suspect]
     Active Substance: RITUXIMAB
     Indication: Rheumatoid arthritis
     Dosage: 2 DOSAGE FORM DOSAGE FORM: UNKNOWN, ROA: INTRAVENOUS (NOT OTHERWISE SPECIFIED)
     Route: 042
  36. RITUXIMAB [Suspect]
     Active Substance: RITUXIMAB
     Dosage: UNK DOSAGE FORM: UNKNOWN, ROA: INTRAVENOUS (NOT OTHERWISE SPECIFIED)
     Route: 042
  37. RITUXIMAB [Suspect]
     Active Substance: RITUXIMAB
     Dosage: UNK DOSAGE FORM: UNKNOWN, ROA: INTRAVENOUS (NOT OTHERWISE SPECIFIED)
     Route: 042
  38. RITUXIMAB [Suspect]
     Active Substance: RITUXIMAB
     Dosage: UNK DOSAGE FORM: UNKNOWN, ROA: UNKNOWN
     Route: 065
  39. RITUXIMAB [Suspect]
     Active Substance: RITUXIMAB
     Dosage: UNK DOSAGE FORM: UNKNOWN, ROA: INTRAVESICAL
     Route: 043
  40. RITUXIMAB [Suspect]
     Active Substance: RITUXIMAB
     Dosage: UNK DOSAGE FORM: UNKNOWN, ROA: SUBCUTANEOUS
     Route: 058
  41. PREGABALIN [Suspect]
     Active Substance: PREGABALIN
     Indication: Product used for unknown indication
     Dosage: UNK ROA: UNKNOWN
     Route: 065
  42. PANTOPRAZOLE SODIUM [Suspect]
     Active Substance: PANTOPRAZOLE SODIUM
     Indication: Product used for unknown indication
     Dosage: UNK ROA: UNKNOWN
     Route: 065
  43. ERELZI [Suspect]
     Active Substance: ETANERCEPT-SZZS
     Indication: Rheumatoid arthritis
     Dosage: 20 MG, QW DOSAGE FORM: UNKNOWN, ROA: SUBCUTANEOUS
     Route: 058
  44. ERELZI [Suspect]
     Active Substance: ETANERCEPT-SZZS
     Indication: Psoriatic arthropathy
     Dosage: 50 MG, QW DOSAGE FORM: UNKNOWN, ROA: SUBCUTANEOUS
     Route: 058
  45. ERELZI [Suspect]
     Active Substance: ETANERCEPT-SZZS
     Dosage: 50 MG DOSAGE FORM: UNKNOWN, ROA: UNKNOWN
     Route: 065
  46. ERELZI [Suspect]
     Active Substance: ETANERCEPT-SZZS
     Dosage: 50 MG DOSAGE FORM: UNKNOWN, ROA: UNKNOWN
     Route: 065
  47. ERELZI [Suspect]
     Active Substance: ETANERCEPT-SZZS
     Dosage: 20 MG DOSAGE FORM: UNKNOWN, ROA: UNKNOWN
     Route: 065
  48. ERELZI [Suspect]
     Active Substance: ETANERCEPT-SZZS
     Dosage: 50 MG, QW DOSAGE FORM: NOT SPECIFIED, ROA: SUBCUTANEOUS
     Route: 058
  49. ERELZI [Suspect]
     Active Substance: ETANERCEPT-SZZS
     Dosage: 20 MG DOSAGE FORM: UNKNOWN, ROA: SUBCUTANEOUS
     Route: 058
  50. CALTRATE [Suspect]
     Active Substance: CALCIUM CARBONATE
     Indication: Rheumatoid arthritis
     Dosage: UNK DOSAGE FORM: NOT SPECIFIED, ROA: UNKNOWN
     Route: 065
  51. CALTRATE [Suspect]
     Active Substance: CALCIUM CARBONATE
     Indication: Psoriatic arthropathy
     Dosage: UNK DOSAGE FORM: UNKNOWN, ROA: UNKNOWN
     Route: 065
  52. TUMS ULTRA [Suspect]
     Active Substance: CALCIUM CARBONATE
     Indication: Product used for unknown indication
     Dosage: UNK DOSAGE FORM: NOT SPECIFIED, ROUTE OF ADMINISTRATION: UNKNOWN (TUMS ULTRA PEPPERMINT )
     Route: 065
  53. TUMS ULTRA [Suspect]
     Active Substance: CALCIUM CARBONATE
     Indication: Rheumatoid arthritis
     Dosage: UNK ROUTE OF ADMINISTRATION: UNKNOWN
     Route: 065
  54. TUMS ULTRA [Suspect]
     Active Substance: CALCIUM CARBONATE
     Indication: Psoriatic arthropathy
     Dosage: ROUTE OF ADMINISTRATION: UNKNOWN
     Route: 065
  55. TUMS ULTRA [Suspect]
     Active Substance: CALCIUM CARBONATE
     Dosage: ROUTE OF ADMINISTRATION: UNKNOWN
     Route: 065
  56. CALCIUM GLUBIONATE [Suspect]
     Active Substance: CALCIUM GLUBIONATE
     Indication: Product used for unknown indication
     Dosage: 110 MG DOSAGE FORM: NOT SPECIFIED, ROA: UNKNOWN
     Route: 065
  57. CALCIUM GLUBIONATE [Suspect]
     Active Substance: CALCIUM GLUBIONATE
     Dosage: UNK ROA: UNKNOWN
     Route: 065
  58. CALCIUM GLUBIONATE [Suspect]
     Active Substance: CALCIUM GLUBIONATE
     Dosage: UNK ROA: UNKNOWN
     Route: 065
  59. CALCIUM GLUBIONATE [Suspect]
     Active Substance: CALCIUM GLUBIONATE
     Dosage: UNK ROA: INTRACARDIAC
     Route: 016
  60. CERTOLIZUMAB PEGOL [Suspect]
     Active Substance: CERTOLIZUMAB PEGOL
     Indication: Rheumatoid arthritis
     Dosage: UNK ROA: UNKNOWN
     Route: 065
  61. CHLORHEXIDINE [Suspect]
     Active Substance: CHLORHEXIDINE
     Indication: Product used for unknown indication
     Dosage: UNK
     Route: 048
  62. CHLORHEXIDINE [Suspect]
     Active Substance: CHLORHEXIDINE
     Dosage: UNK ROA: UNKNOWN
     Route: 065
  63. CHLORHEXIDINE [Suspect]
     Active Substance: CHLORHEXIDINE
     Dosage: UNK ROA: UNKNOWN
     Route: 065
  64. CHOLECALCIFEROL [Suspect]
     Active Substance: CHOLECALCIFEROL
     Indication: Product used for unknown indication
     Dosage: UNK DOSAGE FORM: NOT SPECIFIED, ROA: UNKNOWN
     Route: 065
  65. CHLORHEXIDINE GLUCONATE [Suspect]
     Active Substance: CHLORHEXIDINE GLUCONATE
     Indication: Product used for unknown indication
     Dosage: UNK ROA: UNKNOWN
     Route: 065
  66. CHLORHEXIDINE GLUCONATE [Suspect]
     Active Substance: CHLORHEXIDINE GLUCONATE
     Dosage: UNK ROA: UNKNOWN
     Route: 065
  67. CHLORHEXIDINE GLUCONATE [Suspect]
     Active Substance: CHLORHEXIDINE GLUCONATE
     Dosage: UNK ROA: TOPICAL
     Route: 050
  68. GOLIMUMAB [Suspect]
     Active Substance: GOLIMUMAB
     Indication: Rheumatoid arthritis
     Dosage: UNK ROA: UNKNOWN
     Route: 065
  69. GOLIMUMAB [Suspect]
     Active Substance: GOLIMUMAB
     Indication: Prostatic specific antigen
     Dosage: UNK ROA: SUBCUTANEOUS
     Route: 058
  70. ORENCIA [Suspect]
     Active Substance: ABATACEPT
     Indication: Rheumatoid arthritis
     Dosage: 1 DOSAGE FORM DOSAGE FORM: SOLUTION FOR INJECTION, ROA: INTRAVENOUS (NOT OTHERWISE SPECIFIED)
     Route: 042
  71. ORENCIA [Suspect]
     Active Substance: ABATACEPT
     Dosage: 125 MG, QW DOSAGE FORM: SOLUTION FOR INJECTION, ROA: SUBCUTANEOUS
     Route: 058
  72. ORENCIA [Suspect]
     Active Substance: ABATACEPT
     Dosage: UNK DOSAGE FORM: SOLUTION FOR INJECTION, ROA: SUBCUTANEOUS
     Route: 058
  73. ORENCIA [Suspect]
     Active Substance: ABATACEPT
     Dosage: UNK DOSAGE FORM: SOLUTION FOR INJECTION, ROA: INTRAVENOUS (NOT OTHERWISE SPECIFIED)
     Route: 042
  74. ORENCIA [Suspect]
     Active Substance: ABATACEPT
     Dosage: UNK DOSAGE FORM: SOLUTION FOR INJECTION, ROA: INTRACAVERNOUS
     Route: 017
  75. ORENCIA [Suspect]
     Active Substance: ABATACEPT
     Dosage: UNK DOSAGE FORM: SOLUTION FOR INJECTION, ROA: UNKNOWN
     Route: 065
  76. ORENCIA [Suspect]
     Active Substance: ABATACEPT
     Dosage: UNK DOSAGE FORM: SOLUTION FOR INJECTION, ROA: UNKNOWN
     Route: 065
  77. ORENCIA [Suspect]
     Active Substance: ABATACEPT
     Dosage: 25 MG DOSAGE FORM: SOLUTION FOR INJECTION, ROA: SUBCUTANEOUS
     Route: 058
  78. ORENCIA [Suspect]
     Active Substance: ABATACEPT
     Dosage: 17.857 MG, QD DOSAGE FORM: SOLUTION FOR INJECTION, ROA: SUBCUTANEOUS
     Route: 058
  79. ORENCIA [Suspect]
     Active Substance: ABATACEPT
     Dosage: 125 MG, QW DOSAGE FORM: SOLUTION FOR INJECTION, ROA: INTRAVENOUS (NOT OTHERWISE SPECIFIED)
     Route: 042
  80. ORENCIA [Suspect]
     Active Substance: ABATACEPT
     Dosage: 3 MG DOSAGE FORM: SOLUTION FOR INJECTION
     Route: 048
  81. ORENCIA [Suspect]
     Active Substance: ABATACEPT
     Dosage: 5 MG DOSAGE FORM: SOLUTION FOR INJECTION, ROA: UNKNOWN
     Route: 065
  82. ORENCIA [Suspect]
     Active Substance: ABATACEPT
     Dosage: UNK
     Route: 042
  83. OXYCODONE TEREPHTHALATE [Suspect]
     Active Substance: OXYCODONE TEREPHTHALATE
     Indication: Product used for unknown indication
     Dosage: UNK DOSAGE FORM: NOT SPECIFIED, ROA: UNKNOWN
     Route: 065
  84. PREDNISONE [Suspect]
     Active Substance: PREDNISONE
     Indication: Rheumatoid arthritis
     Dosage: UNK ROA: UNKNOWN
     Route: 065
  85. PREDNISONE [Suspect]
     Active Substance: PREDNISONE
     Dosage: UNK ROA: UNKNOWN
     Route: 065
  86. PREDNISONE [Suspect]
     Active Substance: PREDNISONE
     Dosage: UNK ROA: UNKNOWN
     Route: 065
  87. PREDNISONE [Suspect]
     Active Substance: PREDNISONE
     Dosage: 5 MG
     Route: 048
  88. PREDNISONE [Suspect]
     Active Substance: PREDNISONE
     Dosage: 7.5 MG
     Route: 048
  89. PREDNISONE [Suspect]
     Active Substance: PREDNISONE
     Dosage: UNK
     Route: 048
  90. PREDNISONE [Suspect]
     Active Substance: PREDNISONE
     Dosage: 1 MG ROA: UNKNOWN
     Route: 065
  91. PREDNISONE [Suspect]
     Active Substance: PREDNISONE
     Dosage: UNK
     Route: 048
  92. PREDNISONE [Suspect]
     Active Substance: PREDNISONE
     Dosage: 5 MG DOSAGE FORM: NOT SPECIFIED, ROA: UNKNOWN
     Route: 065
  93. PSEUDOEPHEDRINE [Suspect]
     Active Substance: PSEUDOEPHEDRINE
     Indication: Rheumatoid arthritis
     Dosage: UNK DOSAGE FORM: NOT SPECIFIED, ROA: UNKNOWN
     Route: 065
  94. CETIRIZINE HYDROCHLORIDE [Suspect]
     Active Substance: CETIRIZINE HYDROCHLORIDE
     Indication: Rheumatoid arthritis
     Dosage: 10 MG DOSAGE FORM: NOT SPECIFIED, ROA: UNKNOWN
     Route: 065
  95. CETIRIZINE HYDROCHLORIDE\PSEUDOEPHEDRINE HYDROCHLORIDE [Suspect]
     Active Substance: CETIRIZINE HYDROCHLORIDE\PSEUDOEPHEDRINE HYDROCHLORIDE
     Indication: Rheumatoid arthritis
     Dosage: UNK DOSAGE FORM: PROLONGED-RELEASE TABLET, ROA: UNKNOWN
     Route: 065
  96. CETIRIZINE HYDROCHLORIDE\PSEUDOEPHEDRINE HYDROCHLORIDE [Suspect]
     Active Substance: CETIRIZINE HYDROCHLORIDE\PSEUDOEPHEDRINE HYDROCHLORIDE
     Indication: Off label use
     Dosage: 25 MG DOSAGE FORM: PROLONGED-RELEASE TABLET, ROA: UNKNOWN
     Route: 065
  97. CETIRIZINE HYDROCHLORIDE\PSEUDOEPHEDRINE HYDROCHLORIDE [Suspect]
     Active Substance: CETIRIZINE HYDROCHLORIDE\PSEUDOEPHEDRINE HYDROCHLORIDE
     Indication: Rheumatoid arthritis
     Dosage: 10 MG DOSAGE FORM: TABLET (EXTENDED RELEASE), ROA: UNKNOWN
     Route: 065
  98. CETIRIZINE HYDROCHLORIDE\PSEUDOEPHEDRINE HYDROCHLORIDE [Suspect]
     Active Substance: CETIRIZINE HYDROCHLORIDE\PSEUDOEPHEDRINE HYDROCHLORIDE
     Indication: Off label use
  99. APREMILAST [Suspect]
     Active Substance: APREMILAST
     Indication: Product used for unknown indication
     Dosage: 3 MG
     Route: 048
  100. APREMILAST [Suspect]
     Active Substance: APREMILAST
     Dosage: 3 MG DOSAGE FORM: UNKNOWN
     Route: 048
  101. APREMILAST [Suspect]
     Active Substance: APREMILAST
     Dosage: 3 MG
     Route: 048
  102. SIMPONI [Suspect]
     Active Substance: GOLIMUMAB
     Indication: Rheumatoid arthritis
     Dosage: UNK DOSAGE FORM: SOLUTION FOR INJECTION, ROA: SUBCUTANEOUS
     Route: 058
  103. SIMPONI [Suspect]
     Active Substance: GOLIMUMAB
     Dosage: UNK DOSAGE FORM: SOLUTION SUBCUTANEOUS, ROA: SUBCUTANEOUS
     Route: 058
  104. SIMPONI [Suspect]
     Active Substance: GOLIMUMAB
     Dosage: UNK DOSAGE FORM: SOLUTION FOR INJECTION, ROA: SUBCUTANEOUS
     Route: 058
  105. STELARA [Suspect]
     Active Substance: USTEKINUMAB
     Indication: Product used for unknown indication
     Dosage: UNK DOSAGE FORM: SOLUTION FOR INJECTION, ROA: SUBCUTANEOUS
     Route: 058
  106. STELARA [Suspect]
     Active Substance: USTEKINUMAB
     Dosage: UNK DOSAGE FORM: SOLUTION FOR INJECTION, ROA: UNKNOWN
     Route: 065
  107. STELARA [Suspect]
     Active Substance: USTEKINUMAB
     Dosage: UNK DOSAGE FORM: SOLUTION SUBCUTANEOUS, ROA: INTRAVENOUS (NOT OTHERWISE SPECIFIED)
     Route: 042
  108. STELARA [Suspect]
     Active Substance: USTEKINUMAB
     Dosage: UNK DOSAGE FORM: SOLUTION SUBCUTANEOUS, ROA: INTRAVENOUS (NOT OTHERWISE SPECIFIED)
     Route: 042
  109. USTEKINUMAB [Suspect]
     Active Substance: USTEKINUMAB
     Indication: Product used for unknown indication
     Dosage: 45 MG DOSAGE FORM: SOLUTION, ROA: UNKNOWN
     Route: 065
  110. USTEKINUMAB [Suspect]
     Active Substance: USTEKINUMAB
     Dosage: 45 MG ROA: SUBCUTANEOUS
     Route: 058
  111. USTEKINUMAB [Suspect]
     Active Substance: USTEKINUMAB
     Dosage: 45 MG ROA: SUBCUTANEOUS
     Route: 058
  112. VITAMIN D3 [Suspect]
     Active Substance: CHOLECALCIFEROL
     Indication: Product used for unknown indication
     Dosage: UNK ROA: INTRACARDIAC
     Route: 016
  113. VITAMIN D3 [Suspect]
     Active Substance: CHOLECALCIFEROL
     Dosage: UNK ROA: INTRACARDIAC
     Route: 016
  114. XELJANZ [Suspect]
     Active Substance: TOFACITINIB CITRATE
     Indication: Rheumatoid arthritis
     Dosage: 5 MG DOSAGE FORM: NOT SPECIFIED, ROA: UNKNOWN
     Route: 065
  115. XELJANZ [Suspect]
     Active Substance: TOFACITINIB CITRATE
     Dosage: 10 MG, QD ROA: UNKNOWN
     Route: 065
  116. XELJANZ [Suspect]
     Active Substance: TOFACITINIB CITRATE
     Dosage: 10 MG, QD ROA: UNKNOWN
     Route: 065
  117. XELJANZ [Suspect]
     Active Substance: TOFACITINIB CITRATE
     Dosage: 5 MG ROA: UNKNOWN
     Route: 065
  118. XELJANZ [Suspect]
     Active Substance: TOFACITINIB CITRATE
     Dosage: UNK ROA: UNKNOWN
     Route: 065
  119. ACETAMINOPHEN [Suspect]
     Active Substance: ACETAMINOPHEN
     Indication: Rheumatoid arthritis
     Dosage: UNK ROA: UNKNOWN
     Route: 065
  120. ACETAMINOPHEN [Suspect]
     Active Substance: ACETAMINOPHEN
     Indication: Product used for unknown indication
     Dosage: UNK ROA: UNKNOWN
     Route: 065
  121. ACETAMINOPHEN [Suspect]
     Active Substance: ACETAMINOPHEN
     Dosage: UNK ROA: UNKNOWN
     Route: 065
  122. ACETAMINOPHEN [Suspect]
     Active Substance: ACETAMINOPHEN
     Dosage: UNK ROA: UNKNOWN
     Route: 065
  123. ACETAMINOPHEN [Suspect]
     Active Substance: ACETAMINOPHEN
     Dosage: UNK ROA: UNKNOWN
     Route: 065
  124. ACETAMINOPHEN [Suspect]
     Active Substance: ACETAMINOPHEN
     Dosage: UNK ROA: UNKNOWN
     Route: 065
  125. ACETAMINOPHEN [Suspect]
     Active Substance: ACETAMINOPHEN
     Dosage: 20 MG DOSAGE FORM: NOT SPECIFIED
     Route: 048
  126. ACETAMINOPHEN [Suspect]
     Active Substance: ACETAMINOPHEN
     Dosage: 20 MG
     Route: 048
  127. ACTEMRA [Suspect]
     Active Substance: TOCILIZUMAB
     Indication: Rheumatoid arthritis
     Dosage: 752.8 MG, QMO DOSAGE FORM: SOLUTION FOR INFUSION, ROA: INTRAVENOUS (NOT OTHERWISE SPECIFIED)
     Route: 042
  128. ACTEMRA [Suspect]
     Active Substance: TOCILIZUMAB
     Dosage: 728 MG, QMO DOSAGE FORM: SOLUTION FOR INFUSION, ROA: INTRAVENOUS (NOT OTHERWISE SPECIFIED)
     Route: 042
  129. ACTEMRA [Suspect]
     Active Substance: TOCILIZUMAB
     Dosage: 752.8 MG, Q4W DOSAGE FORM: SOLUTION FOR INFUSION, ROA: INTRAVENOUS (NOT OTHERWISE SPECIFIED)
     Route: 042
  130. ACTEMRA [Suspect]
     Active Substance: TOCILIZUMAB
     Dosage: UNK DOSAGE FORM: SOLUTION FOR INFUSION, ROA: INTRACARDIAC
     Route: 042
  131. ACTEMRA [Suspect]
     Active Substance: TOCILIZUMAB
     Dosage: UNK DOSAGE FORM: SOLUTION FOR INFUSION, ROA: INTRAVENOUS (NOT OTHERWISE SPECIFIED)
     Route: 042
  132. ACTEMRA [Suspect]
     Active Substance: TOCILIZUMAB
     Dosage: 20 MG DOSAGE FORM: SOLUTION FOR INFUSION
     Route: 048
  133. ACTEMRA [Suspect]
     Active Substance: TOCILIZUMAB
     Dosage: UNK DOSAGE FORM: SOLUTION FOR INFUSION, ROA: SUBCUTANEOUS
     Route: 058
  134. ACTEMRA [Suspect]
     Active Substance: TOCILIZUMAB
     Dosage: UNK DOSAGE FORM: SOLUTION FOR INFUSION, ROA: UNKNOWN
     Route: 065
  135. ACTEMRA [Suspect]
     Active Substance: TOCILIZUMAB
     Dosage: UNK DOSAGE FORM: SOLUTION FOR INFUSION
     Route: 048
  136. ACTEMRA [Suspect]
     Active Substance: TOCILIZUMAB
     Dosage: UNK DOSAGE FORM: SOLUTION FOR INFUSION, ROA: INTRAVENOUS (NOT OTHERWISE SPECIFIED)
     Route: 042
  137. ACTEMRA [Suspect]
     Active Substance: TOCILIZUMAB
     Dosage: 3011 MG DOSAGE FORM: SOLUTION FOR INFUSION, ROA: INTRAVENOUS (NOT OTHERWISE SPECIFIED)
     Route: 042
  138. ACTEMRA [Suspect]
     Active Substance: TOCILIZUMAB
     Dosage: 3011.2 MG DOSAGE FORM: SOLUTION FOR INFUSION, ROA: INTRAVENOUS (NOT OTHERWISE SPECIFIED)
     Route: 042
  139. ACTEMRA [Suspect]
     Active Substance: TOCILIZUMAB
     Dosage: 728 MG, Q4W DOSAGE FORM: SOLUTION FOR INFUSION, ROA: INTRAVENOUS (NOT OTHERWISE SPECIFIED)
     Route: 042
  140. ACTEMRA [Suspect]
     Active Substance: TOCILIZUMAB
     Dosage: 728 MG DOSAGE FORM: SOLUTION FOR INFUSION, ROA: UNKNOWN
     Route: 065
  141. ACTEMRA [Suspect]
     Active Substance: TOCILIZUMAB
     Dosage: UNK DOSAGE FORM: SOLUTION FOR INFUSION, ROA: SUBCUTANEOUS
     Route: 058
  142. ACTEMRA [Suspect]
     Active Substance: TOCILIZUMAB
     Dosage: 3011 MG DOSAGE FORM: SOLUTION FOR INFUSION, ROA: INTRAVENOUS (NOT OTHERWISE SPECIFIED)
     Route: 042
  143. ACTEMRA [Suspect]
     Active Substance: TOCILIZUMAB
     Dosage: 728 MG DOSAGE FORM: SOLUTION FOR INFUSION, ROA: INTRAVENOUS (NOT OTHERWISE SPECIFIED)
     Route: 042
  144. ACTEMRA [Suspect]
     Active Substance: TOCILIZUMAB
     Dosage: 752.8 MG DOSAGE FORM: SOLUTION FOR INFUSION, ROA: INTRAVENOUS (NOT OTHERWISE SPECIFIED)
     Route: 042
  145. ACTEMRA [Suspect]
     Active Substance: TOCILIZUMAB
     Dosage: 2912 MG DOSAGE FORM: SOLUTION FOR INFUSION, ROA: INTRAVENOUS (NOT OTHERWISE SPECIFIED)
     Route: 042
  146. ACTEMRA [Suspect]
     Active Substance: TOCILIZUMAB
     Dosage: 2912 MG, QW DOSAGE FORM: SOLUTION FOR INFUSION, ROA: INTRAVENOUS (NOT OTHERWISE SPECIFIED)
     Route: 042
  147. ACTEMRA [Suspect]
     Active Substance: TOCILIZUMAB
     Dosage: UNK DOSAGE FORM: SOLUTION FOR INFUSION, ROA: TOPICAL
     Route: 065
  148. ACTEMRA [Suspect]
     Active Substance: TOCILIZUMAB
     Dosage: UNK
     Route: 065
  149. CIMZIA [Suspect]
     Active Substance: CERTOLIZUMAB PEGOL
     Indication: Rheumatoid arthritis
     Dosage: UNK DOSAGE FORM: SOLUTION FOR INJECTION
     Route: 048
  150. CIMZIA [Suspect]
     Active Substance: CERTOLIZUMAB PEGOL
     Indication: Psoriasis
     Dosage: 400 MG DOSAGE FORM: SOLUTION FOR INJECTION, ROA: SUBCUTANEOUS
     Route: 058
  151. CIMZIA [Suspect]
     Active Substance: CERTOLIZUMAB PEGOL
     Dosage: 1 DOSAGE FORM DOSAGE FORM: SOLUTION FOR INJECTION, ROA: SUBCUTANEOUS
     Route: 058
  152. CIMZIA [Suspect]
     Active Substance: CERTOLIZUMAB PEGOL
     Dosage: UNK DOSAGE FORM: SOLUTION FOR INJECTION; ROA: UNKNOWN
     Route: 065
  153. CIMZIA [Suspect]
     Active Substance: CERTOLIZUMAB PEGOL
     Dosage: UNK DOSAGE FORM: SOLUTION FOR INJECTION; ROA: UNKNOWN
     Route: 065
  154. CORTISONE [Suspect]
     Active Substance: CORTISONE
     Indication: Rheumatoid arthritis
     Dosage: UNK DOSAGE FORM: UNKNOWN, ROA: UNKNOWN
     Route: 065
  155. CORTISONE [Suspect]
     Active Substance: CORTISONE
     Indication: Product used for unknown indication
     Dosage: UNK DOSAGE FORM: UNKNOWN, ROA: UNKNOWN
     Route: 065
  156. CORTISONE [Suspect]
     Active Substance: CORTISONE
     Dosage: UNK DOSAGE FORM: NOT SPECIFIED, ROA: CUTANEOUS
     Route: 003
  157. FOSAMAX [Suspect]
     Active Substance: ALENDRONATE SODIUM
     Indication: Rheumatoid arthritis
     Dosage: UNK ROA: UNKNOWN
     Route: 065
  158. FOSAMAX [Suspect]
     Active Substance: ALENDRONATE SODIUM
     Dosage: UNK ROA: UNKNOWN
     Route: 065
  159. FOSAMAX [Suspect]
     Active Substance: ALENDRONATE SODIUM
     Dosage: UNK ROA: SUBCUTANEOUS
     Route: 058
  160. HYDROXYCHLOROQUINE SULFATE [Suspect]
     Active Substance: HYDROXYCHLOROQUINE SULFATE
     Indication: Rheumatoid arthritis
     Dosage: UNK ROA: SUBCUTANEOUS
     Route: 058
  161. HYDROXYCHLOROQUINE SULFATE [Suspect]
     Active Substance: HYDROXYCHLOROQUINE SULFATE
     Dosage: 400 MG, QD ROA: UNKNOWN
     Route: 065
  162. HYDROXYCHLOROQUINE SULFATE [Suspect]
     Active Substance: HYDROXYCHLOROQUINE SULFATE
     Dosage: 4 DOSAGE FORM ROA: UNKNOWN
     Route: 065
  163. HYDROXYCHLOROQUINE SULFATE [Suspect]
     Active Substance: HYDROXYCHLOROQUINE SULFATE
     Dosage: 400 MG, QD
     Route: 048
  164. HYDROXYCHLOROQUINE SULFATE [Suspect]
     Active Substance: HYDROXYCHLOROQUINE SULFATE
     Dosage: 400 MG, QD
     Route: 048
  165. HYDROXYCHLOROQUINE SULFATE [Suspect]
     Active Substance: HYDROXYCHLOROQUINE SULFATE
     Dosage: 400 MG ROA: UNKNOWN
     Route: 065
  166. HYDROXYCHLOROQUINE SULFATE [Suspect]
     Active Substance: HYDROXYCHLOROQUINE SULFATE
     Dosage: 400 MG ROA: UNKNOWN
     Route: 065
  167. METHOTREXATE [Suspect]
     Active Substance: METHOTREXATE
     Indication: Rheumatoid arthritis
     Dosage: 225 MG DOSE FORM: UNKNOWN
     Route: 048
  168. METHOTREXATE [Suspect]
     Active Substance: METHOTREXATE
     Dosage: 25 MG DOSE FORM: UNKNOWN; ROA: UNKNOWN
     Route: 065
  169. METHOTREXATE [Suspect]
     Active Substance: METHOTREXATE
     Dosage: 20 MG DOSE FORM: UNKNOWN
     Route: 048
  170. METHOTREXATE [Suspect]
     Active Substance: METHOTREXATE
     Dosage: 20 MG DOSE FORM: UNKNOWN; ROA: UNKNOWN
     Route: 065
  171. METHOTREXATE [Suspect]
     Active Substance: METHOTREXATE
     Dosage: 25 MG DOSE FORM: UNKNOWN; ROA: INTRA-ARTICULAR
     Route: 065
  172. METHOTREXATE [Suspect]
     Active Substance: METHOTREXATE
     Dosage: 25 MG DOSE FORM: UNKNOWN; ROA: INTRA-ARTERIAL
     Route: 065
  173. METHOTREXATE [Suspect]
     Active Substance: METHOTREXATE
     Dosage: 25 MG DOSE FORM: UNKNOWN; ROA: UNKNOWN
     Route: 065
  174. METHOTREXATE [Suspect]
     Active Substance: METHOTREXATE
     Dosage: UNK DOSE FORM: UNKNOWN
     Route: 048
  175. METHOTREXATE [Suspect]
     Active Substance: METHOTREXATE
     Dosage: UNK DOSE FORM: UNKNOWN; ROA: UNKNOWN
     Route: 065
  176. METHOTREXATE [Suspect]
     Active Substance: METHOTREXATE
     Dosage: UNK DOSE FORM: UNKNOWN; ROA: UNKNOWN
     Route: 065
  177. METHOTREXATE [Suspect]
     Active Substance: METHOTREXATE
     Dosage: 25 MG, QD DOSE FORM: UNKNOWN
     Route: 048
  178. METHOTREXATE [Suspect]
     Active Substance: METHOTREXATE
     Dosage: 20 MG, QD DOSE FORM: UNKNOWN
     Route: 048
  179. METHOTREXATE [Suspect]
     Active Substance: METHOTREXATE
     Dosage: 25 MG DOSE FORM: UNKNOWN
     Route: 048
  180. METHOTREXATE [Suspect]
     Active Substance: METHOTREXATE
     Dosage: 25 MG DOSE FORM: UNKNOWN
     Route: 048
  181. METHOTREXATE [Suspect]
     Active Substance: METHOTREXATE
     Dosage: UNK ROA: UNKNOWN
     Route: 065
  182. NAPROXEN SODIUM [Suspect]
     Active Substance: NAPROXEN SODIUM
     Indication: Rheumatoid arthritis
     Dosage: 500 MG DOSAGE FORM: NOT SPECIFIED, ROA: UNKNOWN
     Route: 065
  183. NAPROXEN SODIUM [Suspect]
     Active Substance: NAPROXEN SODIUM
     Indication: Psoriatic arthropathy
     Dosage: 1000 MG, QD ROA: UNKNOWN
     Route: 065
  184. NAPROXEN SODIUM [Suspect]
     Active Substance: NAPROXEN SODIUM
     Dosage: UNK ROA: UNKNOWN
     Route: 065
  185. NAPROXEN SODIUM [Suspect]
     Active Substance: NAPROXEN SODIUM
     Dosage: 500 MG ROA: UNKNOWN
     Route: 065
  186. PLAQUENIL [Suspect]
     Active Substance: HYDROXYCHLOROQUINE SULFATE
     Indication: Rheumatoid arthritis
     Dosage: 40 MG, QD ROA: UNKNOWN
     Route: 065
  187. PLAQUENIL [Suspect]
     Active Substance: HYDROXYCHLOROQUINE SULFATE
     Dosage: 40 MG ROA: UNKNOWN
     Route: 065
  188. PLAQUENIL [Suspect]
     Active Substance: HYDROXYCHLOROQUINE SULFATE
     Dosage: 400 MG, QD ROA: UNKNOWN
     Route: 065
  189. PLAQUENIL [Suspect]
     Active Substance: HYDROXYCHLOROQUINE SULFATE
     Dosage: UNK ROA: UNKNOWN
     Route: 065
  190. PLAQUENIL [Suspect]
     Active Substance: HYDROXYCHLOROQUINE SULFATE
     Dosage: UNK
     Route: 048
  191. PLAQUENIL [Suspect]
     Active Substance: HYDROXYCHLOROQUINE SULFATE
     Dosage: UNK
     Route: 048
  192. PLAQUENIL [Suspect]
     Active Substance: HYDROXYCHLOROQUINE SULFATE
     Dosage: 400 MG, QD ROA: UNKNOWN
     Route: 065
  193. PLAQUENIL [Suspect]
     Active Substance: HYDROXYCHLOROQUINE SULFATE
     Dosage: 40 MG, QD
     Route: 048
  194. PLAQUENIL [Suspect]
     Active Substance: HYDROXYCHLOROQUINE SULFATE
     Dosage: 1 DOSAGE FORM, QD ROA: UNKNOWN
     Route: 065
  195. PLAQUENIL [Suspect]
     Active Substance: HYDROXYCHLOROQUINE SULFATE
     Dosage: 400 MG, QD
     Route: 048
  196. SULFASALAZINE [Suspect]
     Active Substance: SULFASALAZINE
     Indication: Rheumatoid arthritis
     Dosage: 1 G DOSAGE FORM: GASTRO-RESISTANT TABLET, ROA: UNKNOWN
     Route: 065
  197. SULFASALAZINE [Suspect]
     Active Substance: SULFASALAZINE
     Dosage: 2 G, QD DOSAGE FORM: GASTRO-RESISTANT TABLET
     Route: 048
  198. SULFASALAZINE [Suspect]
     Active Substance: SULFASALAZINE
     Dosage: 1 DOSAGE FORM DOSAGE FORM: GASTRO-RESISTANT TABLET
     Route: 048
  199. SULFASALAZINE [Suspect]
     Active Substance: SULFASALAZINE
     Dosage: 1000 MG DOSAGE FORM: GASTRO-RESISTANT TABLET
     Route: 048
  200. SULFASALAZINE [Suspect]
     Active Substance: SULFASALAZINE
     Dosage: 300 MG, QD DOSAGE FORM: GASTRO-RESISTANT TABLET, ROA: UNKNOWN
     Route: 065
  201. SULFASALAZINE [Suspect]
     Active Substance: SULFASALAZINE
     Dosage: UNK DOSAGE FORM: GASTRO-RESISTANT TABLET
     Route: 048
  202. SULFASALAZINE [Suspect]
     Active Substance: SULFASALAZINE
     Dosage: 500 MG DOSAGE FORM: GASTRO-RESISTANT TABLET
     Route: 065
  203. SULFASALAZINE [Suspect]
     Active Substance: SULFASALAZINE
     Dosage: 500 MG DOSAGE FORM: GASTRO-RESISTANT TABLET
     Route: 065
  204. SULFASALAZINE [Suspect]
     Active Substance: SULFASALAZINE
     Dosage: UNK DOSAGE FORM: GASTRO-RESISTANT TABLET
     Route: 048
  205. SULFASALAZINE [Suspect]
     Active Substance: SULFASALAZINE
     Dosage: 1 G, QD DOSAGE FORM: GASTRO-RESISTANT TABLET, ROA: UNKNOWN
     Route: 065
  206. SULFASALAZINE [Suspect]
     Active Substance: SULFASALAZINE
     Dosage: 1 DOSAGE FORM DOSAGE FORM: GASTRO-RESISTANT TABLET
     Route: 048
  207. SULFASALAZINE [Suspect]
     Active Substance: SULFASALAZINE
     Dosage: 500 MG DOSAGE FORM: GASTRO-RESISTANT TABLET
     Route: 048
  208. SULFASALAZINE [Suspect]
     Active Substance: SULFASALAZINE
     Dosage: 2000 MG DOSAGE FORM: GASTRO-RESISTANT TABLET
     Route: 048
  209. SULFASALAZINE [Suspect]
     Active Substance: SULFASALAZINE
     Dosage: 1 G DOSAGE FORM: GASTRO-RESISTANT TABLET, ROA; UNKNOWN
     Route: 065
  210. SULFASALAZINE [Suspect]
     Active Substance: SULFASALAZINE
     Dosage: UNK DOSAGE FORM: GASTRO-RESISTANT TABLET, ROA; UNKNOWN
     Route: 065
  211. SULFASALAZINE [Suspect]
     Active Substance: SULFASALAZINE
     Dosage: DOSAGE FORM: GASTRO-RESISTANT TABLET, ROA; UNKNOWN
     Route: 048
  212. SULFASALAZINE [Suspect]
     Active Substance: SULFASALAZINE
     Dosage: 1000 MG DOSAGE FORM: GASTRO-RESISTANT TABLET
     Route: 048
  213. SULFASALAZINE [Suspect]
     Active Substance: SULFASALAZINE
     Dosage: 1 G, QD DOSAGE FORM: GASTRO-RESISTANT TABLET; ROA: SUBCUTANEOUS
     Route: 065
  214. SULFASALAZINE [Suspect]
     Active Substance: SULFASALAZINE
     Dosage: 500 MG DOSAGE FORM: GASTRO-RESISTANT TABLET; ROA: UNKNOWN
     Route: 065
  215. SULFASALAZINE [Suspect]
     Active Substance: SULFASALAZINE
     Dosage: 1 GDOSAGE FORM: GASTRO-RESISTANT TABLET
     Route: 048
  216. SULFASALAZINE [Suspect]
     Active Substance: SULFASALAZINE
     Dosage: UNK DOSAGE FORM: GASTRO-RESISTANT TABLET
     Route: 048
  217. SULFASALAZINE [Suspect]
     Active Substance: SULFASALAZINE
     Dosage: 1 G, QD DOSAGE FORM: GASTRO-RESISTANT TABLET
     Route: 048
  218. SULFASALAZINE [Suspect]
     Active Substance: SULFASALAZINE
     Indication: Rheumatoid arthritis
     Dosage: 1000 MG DOSAGE FORM: NOT SPECIFIED
     Route: 048
  219. TOFACITINIB CITRATE [Suspect]
     Active Substance: TOFACITINIB CITRATE
     Indication: Rheumatoid arthritis
     Dosage: UNK ROA: UNKNOWN
     Route: 065
  220. TOFACITINIB CITRATE [Suspect]
     Active Substance: TOFACITINIB CITRATE
     Dosage: 10 MG, QD ROA: UNKNOWN
     Route: 065
  221. TOFACITINIB CITRATE [Suspect]
     Active Substance: TOFACITINIB CITRATE
     Dosage: 5 MG, QD
     Route: 048
  222. TOFACITINIB CITRATE [Suspect]
     Active Substance: TOFACITINIB CITRATE
     Dosage: 5 MG, QD ROA: UNKNOWN
     Route: 065
  223. TOFACITINIB CITRATE [Suspect]
     Active Substance: TOFACITINIB CITRATE
     Dosage: 5 MG, QW
     Route: 048
  224. TOFACITINIB CITRATE [Suspect]
     Active Substance: TOFACITINIB CITRATE
     Dosage: 5 MG ROA: UNKNOWN
     Route: 065
  225. TOFACITINIB CITRATE [Suspect]
     Active Substance: TOFACITINIB CITRATE
     Dosage: 5 MG ROA: UNKNOWN
     Route: 065
  226. BENZOCAINE (BENZOCAINE) [Suspect]
     Active Substance: BENZOCAINE
     Indication: Product used for unknown indication
     Dosage: UNK DOSAGE FORM: NOT SPECIFIED, ROA: UNKNOWN
     Route: 065
  227. CELECOXIB [Suspect]
     Active Substance: CELECOXIB
     Indication: Arthritis
     Dosage: UNK ROA: UNKNOWN
     Route: 065
  228. CELECOXIB [Suspect]
     Active Substance: CELECOXIB
     Dosage: 2 DOSAGE FORM, QD
     Route: 048
  229. CELECOXIB [Suspect]
     Active Substance: CELECOXIB
     Dosage: 2 DOSAGE FORM, QD
     Route: 048
  230. CELECOXIB [Suspect]
     Active Substance: CELECOXIB
     Dosage: UNK
     Route: 048
  231. CETRIMONIUM BROMIDE [Suspect]
     Active Substance: CETRIMONIUM BROMIDE
     Indication: Product used for unknown indication
     Dosage: UNK ROA: UNKNOWN
     Route: 065
  232. CETRIMONIUM BROMIDE [Suspect]
     Active Substance: CETRIMONIUM BROMIDE
     Dosage: UNK ROA: TOPICAL
     Route: 050
  233. CHLORAPREP [Suspect]
     Active Substance: CHLORHEXIDINE GLUCONATE\ISOPROPYL ALCOHOL
     Indication: Product used for unknown indication
     Dosage: UNK DOSAGE FORM: SOLUTION, ROA: UNKNOWN
     Route: 065
  234. CHLORAPREP [Suspect]
     Active Substance: CHLORHEXIDINE GLUCONATE\ISOPROPYL ALCOHOL
     Dosage: UNK DOSAGE FORM: SOLUTION, ROA: TOPICAL
     Route: 050
  235. DOXYCYCLINE [Suspect]
     Active Substance: DOXYCYCLINE
     Indication: Product used for unknown indication
     Dosage: UNK DOSAGE FORM: NOT SPECIFIED, ROA: UNKNOWN
     Route: 065
  236. ELBASVIR [Suspect]
     Active Substance: ELBASVIR
     Indication: Rheumatoid arthritis
     Dosage: UNK ROA: UNKNOWN
     Route: 065
  237. FOLIC ACID [Suspect]
     Active Substance: FOLIC ACID
     Indication: Rheumatoid arthritis
     Dosage: 500 MG
     Route: 048
  238. FOLIC ACID [Suspect]
     Active Substance: FOLIC ACID
     Dosage: UNK ROA: UNKNOWN
     Route: 065
  239. FOLIC ACID [Suspect]
     Active Substance: FOLIC ACID
     Dosage: 25 MG
     Route: 048
  240. FOLIC ACID [Suspect]
     Active Substance: FOLIC ACID
     Dosage: 10 MG ROA: UNKNOWN
     Route: 065
  241. FOLIC ACID [Suspect]
     Active Substance: FOLIC ACID
     Dosage: 1 MG ROA: UNKNOWN
     Route: 065
  242. FOLIC ACID [Suspect]
     Active Substance: FOLIC ACID
     Dosage: 15 MG ROA: UNKNOWN
     Route: 065
  243. FOLIC ACID [Suspect]
     Active Substance: FOLIC ACID
     Dosage: UNK ROA: UNKNOWN
     Route: 065
  244. FOLIC ACID [Suspect]
     Active Substance: FOLIC ACID
     Dosage: 1 MG ROA: SUBCUTANEOUS
     Route: 058
  245. FOLIC ACID [Suspect]
     Active Substance: FOLIC ACID
     Dosage: 1 MG ROA: UNKNOWN
     Route: 065
  246. FOLIC ACID [Suspect]
     Active Substance: FOLIC ACID
     Dosage: 5 MG ROA: UNKNOWN
     Route: 065
  247. FOLIC ACID [Suspect]
     Active Substance: FOLIC ACID
     Dosage: 0.5 MG
     Route: 048
  248. HYDROCORTISONE ACETATE [Suspect]
     Active Substance: HYDROCORTISONE ACETATE
     Indication: Rheumatoid arthritis
     Dosage: UNK DOSAGE FORM: OINTMENT, ROA: UNKNOWN
     Route: 065
  249. HYDROCORTISONE ACETATE [Suspect]
     Active Substance: HYDROCORTISONE ACETATE
     Dosage: UNK DOSAGE FORM: OINTMENT, ROA: CUTANEOUS
     Route: 003
  250. HYDROCORTISONE ACETATE [Suspect]
     Active Substance: HYDROCORTISONE ACETATE
     Dosage: UNK DOSAGE FORM: OINTMENT, ROA: UNKNOWN
     Route: 065
  251. HYDROCORTISONE ACETATE [Suspect]
     Active Substance: HYDROCORTISONE ACETATE
     Dosage: UNK DOSAGE FORM: OINTMENT, ROA: UNKNOWN
     Route: 065
  252. INFLIXIMAB [Suspect]
     Active Substance: INFLIXIMAB
     Indication: Rheumatoid arthritis
     Dosage: UNK DOSAGE FORM: POWDER FOR CONCENTRATE FOR SOLUTION FOR INFUSION, ROA: UNKNOWN
     Route: 065
  253. INFLIXIMAB [Suspect]
     Active Substance: INFLIXIMAB
     Dosage: 500 MG DOSAGE FORM: NOT SPECIFIED, ROA: INTRAVENOUS (NOT OTHERWISE SPECIFIED)
     Route: 042
  254. INFLIXIMAB [Suspect]
     Active Substance: INFLIXIMAB
     Dosage: 500 MG
     Route: 065
  255. ISOPROPYL ALCOHOL [Suspect]
     Active Substance: ISOPROPYL ALCOHOL
     Indication: Product used for unknown indication
     Dosage: UNK ROA: UNKNOWN
     Route: 065
  256. ISOPROPYL ALCOHOL [Suspect]
     Active Substance: ISOPROPYL ALCOHOL
     Dosage: UNK ROA: UNKNOWN
     Route: 065
  257. ISOPROPYL ALCOHOL [Suspect]
     Active Substance: ISOPROPYL ALCOHOL
     Dosage: UNK DOSAGE FORM: LIQUID TOPICAL, ROA: TOPICAL
     Route: 050
  258. ISOPROPYL ALCOHOL [Suspect]
     Active Substance: ISOPROPYL ALCOHOL
     Dosage: UNK ROA: UNKNOWN
     Route: 065
  259. PERIOGARD [Suspect]
     Active Substance: CHLORHEXIDINE GLUCONATE
     Indication: Product used for unknown indication
     Dosage: UNK ROA: BUCCAL
     Route: 002
  260. PERIOGARD [Suspect]
     Active Substance: CHLORHEXIDINE GLUCONATE
     Dosage: UNK ROA: UNKNOWN
     Route: 065
  261. HYDROCORTISONE [Suspect]
     Active Substance: HYDROCORTISONE
     Indication: Rheumatoid arthritis
     Dosage: UNK ROA: UNKNOWN
     Route: 065
  262. SULFAMETHOXAZOLE\TRIMETHOPRIM [Suspect]
     Active Substance: SULFAMETHOXAZOLE\TRIMETHOPRIM
     Indication: Product used for unknown indication
     Dosage: UNK DOSAGE FORM: NOT SPECIFIED, ROA: UNKNOWN
     Route: 065
  263. TOCILIZUMAB [Suspect]
     Active Substance: TOCILIZUMAB
     Indication: Rheumatoid arthritis
     Dosage: UNK ROA: UNKNOWN
     Route: 065
  264. VITAMIN C [Suspect]
     Active Substance: ASCORBIC ACID
     Indication: Rheumatoid arthritis
     Dosage: UNK DOSAGE FORM: NOT SPECIFIED, ROA: UNKNOWN
     Route: 065
  265. HYALURONIDASE (HUMAN RECOMBINANT) [Suspect]
     Active Substance: HYALURONIDASE (HUMAN RECOMBINANT)
     Indication: Rheumatoid arthritis
     Dosage: UNK ROA: UNKNOWN
     Route: 065
  266. CETIRIZINE [Suspect]
     Active Substance: CETIRIZINE HYDROCHLORIDE
     Indication: Rheumatoid arthritis
     Dosage: 25 MG
     Route: 048
  267. CETIRIZINE [Suspect]
     Active Substance: CETIRIZINE HYDROCHLORIDE
     Dosage: 10 MG ROA: UNKNOWN
     Route: 065
  268. CETIRIZINE [Suspect]
     Active Substance: CETIRIZINE HYDROCHLORIDE
     Dosage: 10 MG ROA: UNKNOWN
     Route: 065
  269. CETIRIZINE [Suspect]
     Active Substance: CETIRIZINE HYDROCHLORIDE
     Dosage: UNK
     Route: 048
  270. CETIRIZINE HYDROCHLORIDE [Suspect]
     Active Substance: CETIRIZINE HYDROCHLORIDE
     Indication: Rheumatoid arthritis
     Dosage: 10 MG, QD
     Route: 048
  271. CETIRIZINE HYDROCHLORIDE [Suspect]
     Active Substance: CETIRIZINE HYDROCHLORIDE
     Dosage: UNK
     Route: 048
  272. CETIRIZINE HYDROCHLORIDE [Suspect]
     Active Substance: CETIRIZINE HYDROCHLORIDE
     Dosage: 10 MG
     Route: 048
  273. CETIRIZINE HYDROCHLORIDE [Suspect]
     Active Substance: CETIRIZINE HYDROCHLORIDE
     Dosage: UNK ROA: UNKNOWN
     Route: 065
  274. CETIRIZINE HYDROCHLORIDE [Suspect]
     Active Substance: CETIRIZINE HYDROCHLORIDE
     Dosage: 25 MG ROA: UNKNOWN
     Route: 065
  275. CORTISONE ACETATE [Suspect]
     Active Substance: CORTISONE ACETATE
     Indication: Rheumatoid arthritis
     Dosage: 25 MG DOSAGE FORM: OINTMENT, ROA: UNKNOWN
     Route: 065
  276. CORTISONE ACETATE [Suspect]
     Active Substance: CORTISONE ACETATE
     Dosage: 25 MG DOSAGE FORM: OINTMENT, ROA: UNKNOWN
     Route: 065
  277. CORTISONE ACETATE [Suspect]
     Active Substance: CORTISONE ACETATE
     Dosage: 25 MG DOSAGE FORM: OINTMENT
     Route: 048
  278. CORTISONE ACETATE [Suspect]
     Active Substance: CORTISONE ACETATE
     Dosage: 25 MG DOSAGE FORM: OINTMENT, ROA: TOPICAL
     Route: 065
  279. CORTISONE ACETATE [Suspect]
     Active Substance: CORTISONE ACETATE
     Dosage: UNK DOSAGE FORM: OINTMENT, ROA: TOPICAL
     Route: 065
  280. CORTISONE ACETATE [Suspect]
     Active Substance: CORTISONE ACETATE
     Dosage: UNK DOSAGE FORM: OINTMENT
     Route: 048
  281. CORTISONE ACETATE [Suspect]
     Active Substance: CORTISONE ACETATE
     Dosage: UNK DOSAGE FORM: OINTMENT, ROA: UNKNOWN
     Route: 065
  282. DESOXIMETASONE [Suspect]
     Active Substance: DESOXIMETASONE
     Indication: Rheumatoid arthritis
     Dosage: UNK DOSAGE FORM: CREAM, ROA: UNKNOWN
     Route: 065
  283. DESOXIMETASONE [Suspect]
     Active Substance: DESOXIMETASONE
     Dosage: UNK DOSAGE FORM: CREAM,
     Route: 048
  284. DESOXIMETASONE [Suspect]
     Active Substance: DESOXIMETASONE
     Dosage: 25 MG DOSAGE FORM: CREAM, ROA: TOPICAL
     Route: 065
  285. DESOXIMETASONE [Suspect]
     Active Substance: DESOXIMETASONE
     Dosage: 25 MG DOSAGE FORM: CREAM, ROA: UNKNOWN
     Route: 065
  286. DESOXIMETASONE [Suspect]
     Active Substance: DESOXIMETASONE
     Dosage: UNK DOSAGE FORM: CREAM, ROA: UNKNOWN
     Route: 065
  287. DESOXIMETASONE [Suspect]
     Active Substance: DESOXIMETASONE
     Dosage: UNK DOSAGE FORM: NOT SPECIFIED, ROA: SUBCUTANEOUS
     Route: 058
  288. DESOXIMETASONE [Suspect]
     Active Substance: DESOXIMETASONE
     Dosage: UNK DOSAGE FORM: NOT SPECIFIED, ROA: SUBCUTANEOUS
     Route: 058
  289. FLUMETHASONE PIVALATE [Suspect]
     Active Substance: FLUMETHASONE PIVALATE
     Indication: Rheumatoid arthritis
     Dosage: UNK ROA: UNKNOWN
     Route: 065
  290. FLUMETHASONE PIVALATE [Suspect]
     Active Substance: FLUMETHASONE PIVALATE
     Indication: Product used for unknown indication
     Dosage: UNK ROA: UNKNOWN
     Route: 065
  291. FLUMETHASONE PIVALATE [Suspect]
     Active Substance: FLUMETHASONE PIVALATE
     Dosage: UNK ROA: UNKNOWN
     Route: 065
  292. FLUMETHASONE PIVALATE [Suspect]
     Active Substance: FLUMETHASONE PIVALATE
     Dosage: UNK ROA: SUBCUTANEOUS
     Route: 058
  293. HYDROXYCHLOROQUINE [Suspect]
     Active Substance: HYDROXYCHLOROQUINE
     Indication: Rheumatoid arthritis
     Dosage: 40 MG ROA: UNKNOWN
     Route: 065
  294. HYDROXYCHLOROQUINE [Suspect]
     Active Substance: HYDROXYCHLOROQUINE
     Dosage: 4 DOSAGE FORM ROA: UNKNOWN
     Route: 065
  295. HYDROXYCHLOROQUINE [Suspect]
     Active Substance: HYDROXYCHLOROQUINE
     Dosage: UNK ROA: UNKNOWN
     Route: 065
  296. HYDROXYCHLOROQUINE [Suspect]
     Active Substance: HYDROXYCHLOROQUINE
     Dosage: UNK
     Route: 048
  297. HYDROXYCHLOROQUINE [Suspect]
     Active Substance: HYDROXYCHLOROQUINE
     Dosage: 400 MG, QD
     Route: 048
  298. HYDROXYCHLOROQUINE [Suspect]
     Active Substance: HYDROXYCHLOROQUINE
     Dosage: 400 MG, QD ROA: UNKNOWN
     Route: 065
  299. HYDROXYCHLOROQUINE [Suspect]
     Active Substance: HYDROXYCHLOROQUINE
     Dosage: 400 MG ROA: UNKNOWN
     Route: 065
  300. PHTHALYLSULFATHIAZOLE [Suspect]
     Active Substance: PHTHALYLSULFATHIAZOLE
     Indication: Rheumatoid arthritis
     Dosage: UNK ROA: INTRAVENOUS (NOT OTHERWISE SPECIFIED)
     Route: 042
  301. PHTHALYLSULFATHIAZOLE [Suspect]
     Active Substance: PHTHALYLSULFATHIAZOLE
     Dosage: 50 MG
     Route: 048
  302. PHTHALYLSULFATHIAZOLE [Suspect]
     Active Substance: PHTHALYLSULFATHIAZOLE
     Dosage: UNK ROA: SUBCUTANEOUS
     Route: 058
  303. PHTHALYLSULFATHIAZOLE [Suspect]
     Active Substance: PHTHALYLSULFATHIAZOLE
     Dosage: UNK ROA: SUBCUTANEOUS
     Route: 058
  304. PHTHALYLSULFATHIAZOLE [Suspect]
     Active Substance: PHTHALYLSULFATHIAZOLE
     Dosage: UNK ROA: UNKNOWN
     Route: 065
  305. PSEUDOEPHEDRINE HYDROCHLORIDE [Suspect]
     Active Substance: PSEUDOEPHEDRINE HYDROCHLORIDE
     Indication: Rheumatoid arthritis
     Dosage: 1 MG ROA: UNKNOWN
     Route: 065
  306. PSEUDOEPHEDRINE HYDROCHLORIDE [Suspect]
     Active Substance: PSEUDOEPHEDRINE HYDROCHLORIDE
     Dosage: UNK ROA: UNKNOWN
     Route: 065
  307. PSEUDOEPHEDRINE HYDROCHLORIDE [Suspect]
     Active Substance: PSEUDOEPHEDRINE HYDROCHLORIDE
     Dosage: UNK ROA: UNKNOWN
     Route: 065
  308. PSEUDOEPHEDRINE HYDROCHLORIDE [Suspect]
     Active Substance: PSEUDOEPHEDRINE HYDROCHLORIDE
     Dosage: 25 MG ROA: UNKNOWN
     Route: 065
  309. PSEUDOEPHEDRINE HYDROCHLORIDE [Suspect]
     Active Substance: PSEUDOEPHEDRINE HYDROCHLORIDE
     Dosage: 10 MG ROA: UNKNOWN
     Route: 065

REACTIONS (6)
  - Pruritus [Not Recovered/Not Resolved]
  - Intentional product use issue [Not Recovered/Not Resolved]
  - Mobility decreased [Not Recovered/Not Resolved]
  - Drug ineffective [Not Recovered/Not Resolved]
  - Therapeutic product effect decreased [Not Recovered/Not Resolved]
  - Therapy non-responder [Not Recovered/Not Resolved]
